FAERS Safety Report 8240483-2 (Version None)
Quarter: 2012Q1

REPORT INFORMATION
  Report Type: 
  Country: None (occurrence: None)
  Receive Date: 20120328
  Receipt Date: 20120323
  Transmission Date: 20120608
  Serious: Yes (Hospitalization)
  Sender: FDA-Public Use
  Company Number: FR-PFIZER INC-2012075412

PATIENT
  Age: 80 Year
  Sex: Male

DRUGS (8)
  1. RAMIPRIL [Suspect]
     Indication: ATRIAL FIBRILLATION
     Dosage: 5 MG, 2X/DAY
     Route: 048
     Dates: end: 20120215
  2. METEOSPASMYL [Concomitant]
     Dosage: 1 DF, 2X/DAY
     Route: 048
  3. AMLODIPINE BESYLATE [Concomitant]
     Dosage: 5 MG, 1X/DAY
     Route: 048
  4. ALLOPURINOL [Concomitant]
     Dosage: 100 MG, 1X/DAY
     Route: 048
  5. ALDACTONE [Suspect]
     Dosage: 25 MG, 1X/DAY
     Route: 048
     Dates: end: 20120215
  6. POLYETHYLENE GLYCOL [Concomitant]
     Dosage: 10 G, 1X/DAY
     Route: 048
  7. ASPIRIN [Concomitant]
     Dosage: 75 MG, 1X/DAY
     Route: 048
  8. ACETAMINOPHEN [Concomitant]
     Dosage: 500 MG CAPSULE, TWO DOSAGE FORMS THREE TIMES PER DAY
     Route: 048

REACTIONS (3)
  - SMALL INTESTINAL OBSTRUCTION [None]
  - APPENDICITIS [None]
  - RENAL FAILURE ACUTE [None]
